FAERS Safety Report 9328747 (Version 1)
Quarter: 2013Q2

REPORT INFORMATION
  Report Type: Spontaneous
  Country: US (occurrence: US)
  Receive Date: 20130604
  Receipt Date: 20130604
  Transmission Date: 20140414
  Serious: No
  Sender: FDA-Public Use
  Company Number: US-SANOFI-AVENTIS-2013SA011617

PATIENT
  Age: 59 Year
  Sex: Female

DRUGS (5)
  1. LANTUS [Suspect]
     Dosage: DOSE:10 UNIT(S)
     Dates: start: 20130205
  2. JANUVIA [Suspect]
  3. GLIPIZIDE [Suspect]
  4. MULTIVITAMINS [Suspect]
  5. ALL OTHER THERAPEUTIC PRODUCTS [Suspect]

REACTIONS (6)
  - Nervousness [Recovered/Resolved with Sequelae]
  - Hyperhidrosis [Recovered/Resolved with Sequelae]
  - Feeling abnormal [Recovered/Resolved with Sequelae]
  - Fatigue [Recovering/Resolving]
  - Feeling abnormal [Recovering/Resolving]
  - Blood glucose increased [Unknown]
